FAERS Safety Report 24631146 (Version 3)
Quarter: 2025Q1

REPORT INFORMATION
  Report Type: Report from Study
  Country: AE (occurrence: AE)
  Receive Date: 20241118
  Receipt Date: 20250113
  Transmission Date: 20250409
  Serious: Yes (Hospitalization)
  Sender: SANOFI AVENTIS
  Company Number: AE-BIOVITRUM-2024-AE-013264

PATIENT
  Age: 9 Year
  Sex: Male

DRUGS (6)
  1. ELOCTA [Suspect]
     Active Substance: EFMOROCTOCOG ALFA
     Indication: Factor VIII deficiency
     Dosage: 1000 IU, BIW
     Route: 042
     Dates: start: 20211020, end: 20241016
  2. ELOCTA [Suspect]
     Active Substance: EFMOROCTOCOG ALFA
     Indication: Factor VIII deficiency
     Dosage: 1000 IU, BIW
     Route: 042
     Dates: start: 20211020, end: 20241016
  3. ELOCTA [Suspect]
     Active Substance: EFMOROCTOCOG ALFA
     Dosage: 1750 IU, BIW
     Route: 042
     Dates: end: 20241109
  4. ELOCTA [Suspect]
     Active Substance: EFMOROCTOCOG ALFA
     Dosage: 1750 IU, BIW
     Route: 042
     Dates: end: 20241109
  5. ELOCTA [Suspect]
     Active Substance: EFMOROCTOCOG ALFA
     Route: 065
     Dates: start: 20241110
  6. ELOCTA [Suspect]
     Active Substance: EFMOROCTOCOG ALFA
     Route: 065
     Dates: start: 20241110

REACTIONS (5)
  - Pain in extremity [Unknown]
  - Gait inability [Unknown]
  - Product dose omission issue [Unknown]
  - Insurance issue [Unknown]
  - Inappropriate schedule of product administration [Unknown]

NARRATIVE: CASE EVENT DATE: 20241016
